FAERS Safety Report 23364221 (Version 1)
Quarter: 2024Q1

REPORT INFORMATION
  Report Type: Other
  Country: JP (occurrence: JP)
  Receive Date: 20240104
  Receipt Date: 20240104
  Transmission Date: 20240410
  Serious: Yes (Hospitalization)
  Sender: FDA-Public Use
  Company Number: JP-CHUGAI-2023009069

PATIENT
  Age: 11 Year
  Sex: Female

DRUGS (3)
  1. TAMIFLU [Suspect]
     Active Substance: OSELTAMIVIR PHOSPHATE
     Indication: Influenza
     Route: 048
  2. DEXTROMETHORPHAN HYDROBROMIDE [Concomitant]
     Active Substance: DEXTROMETHORPHAN HYDROBROMIDE
     Indication: Influenza
     Dosage: UNK
     Route: 048
  3. TIARAMIDE HYDROCHLORIDE [Concomitant]
     Active Substance: TIARAMIDE HYDROCHLORIDE
     Indication: Influenza
     Dosage: UNK
     Route: 048

REACTIONS (3)
  - Cheilitis [Recovering/Resolving]
  - Stomatitis [Recovering/Resolving]
  - Glossitis [Unknown]
